FAERS Safety Report 4966014-8 (Version None)
Quarter: 2006Q2

REPORT INFORMATION
  Report Type: 
  Country: None (occurrence: None)
  Receive Date: 20060407
  Receipt Date: 20060220
  Transmission Date: 20061013
  Serious: Yes (Hospitalization)
  Sender: FDA-Public Use
  Company Number: JP-JPN-A200600685

PATIENT
  Age: 58 Year
  Sex: Male
  Weight: 57 kg

DRUGS (15)
  1. VALTREX [Suspect]
     Indication: HERPES SIMPLEX
     Dosage: 1000MG THREE TIMES PER DAY
     Route: 048
     Dates: start: 20060101, end: 20060105
  2. VALTREX [Suspect]
     Dosage: 500MG TWICE PER DAY
     Route: 048
     Dates: start: 20060106, end: 20060111
  3. VALTREX [Suspect]
     Dosage: 1000MG THREE TIMES PER DAY
     Route: 048
     Dates: start: 20060127, end: 20060201
  4. VALTREX [Suspect]
     Dosage: 1000MG THREE TIMES PER DAY
     Route: 048
     Dates: start: 20060208, end: 20060220
  5. ZOVIRAX [Suspect]
     Indication: HERPES SIMPLEX
     Dosage: 500MG PER DAY
     Route: 042
     Dates: start: 20060202, end: 20060206
  6. ZOVIRAX [Suspect]
     Dosage: 250MG PER DAY
     Route: 042
     Dates: start: 20060203, end: 20060207
  7. NORVASC [Concomitant]
     Indication: HYPERTENSION
     Dosage: 5MG PER DAY
     Route: 048
     Dates: start: 20051219
  8. TAKEPRON [Concomitant]
     Dosage: 30MG PER DAY
     Route: 048
     Dates: start: 20051219
  9. NOVORAPID [Concomitant]
     Indication: DIABETES MELLITUS
     Dosage: 10IU TWICE PER DAY
     Route: 058
     Dates: start: 20051219
  10. BRIPLATIN [Concomitant]
     Dosage: 30MG PER DAY
     Route: 042
     Dates: start: 20051216, end: 20051230
  11. FLUOROURACIL [Concomitant]
     Dosage: 1500MG PER DAY
     Route: 042
     Dates: start: 20051226, end: 20051230
  12. FLUOROURACIL [Concomitant]
     Dosage: 1500MG UNKNOWN
     Route: 042
     Dates: start: 20060123, end: 20060127
  13. BRIPLATIN [Concomitant]
     Dosage: 30MG UNKNOWN
     Route: 042
     Dates: start: 20060123, end: 20060127
  14. NOVORAPID [Concomitant]
     Route: 058
     Dates: start: 20051219
  15. NOVORAPID [Concomitant]
     Dosage: 20IU UNKNOWN
     Route: 058
     Dates: start: 20051219

REACTIONS (3)
  - BLOOD CREATININE INCREASED [None]
  - BLOOD UREA INCREASED [None]
  - RENAL IMPAIRMENT [None]
